FAERS Safety Report 6013797-4 (Version None)
Quarter: 2008Q4

REPORT INFORMATION
  Report Type: 
  Country: None (occurrence: None)
  Receive Date: 20081219
  Receipt Date: 20081208
  Transmission Date: 20090506
  Serious: Yes (Other)
  Sender: FDA-Public Use
  Company Number: JP-PFIZER INC-2008151631

PATIENT

DRUGS (2)
  1. MYCOBUTIN [Suspect]
     Indication: MYCOBACTERIAL INFECTION
     Dosage: UNK
     Route: 048
     Dates: start: 20081024, end: 20080101
  2. MYCOBUTIN [Suspect]
     Dosage: UNK
     Route: 048
     Dates: start: 20081120, end: 20080101

REACTIONS (5)
  - DIARRHOEA [None]
  - HYPOAESTHESIA [None]
  - LOSS OF CONSCIOUSNESS [None]
  - NIGHT SWEATS [None]
  - TREMOR [None]
